FAERS Safety Report 4650501-6 (Version None)
Quarter: 2005Q2

REPORT INFORMATION
  Report Type: 
  Country: None (occurrence: None)
  Receive Date: 20050429
  Receipt Date: 20050419
  Transmission Date: 20051028
  Serious: Yes (Death, Congenital Anomaly)
  Sender: FDA-Public Use
  Company Number: 2005-04-1443

PATIENT
  Sex: Male

DRUGS (7)
  1. ALBUTEROL SULFATE HFA [Suspect]
     Dosage: ORAL AER INH
     Route: 055
  2. TIOTROPIUM BROMIDE [Suspect]
  3. DIGOXIN [Suspect]
  4. OMEPRAZOLE [Suspect]
  5. SALMETEROL [Suspect]
  6. NITRAZEPAM [Suspect]
  7. CO-PROXAMOL (APOREX) [Suspect]

REACTIONS (2)
  - CHRONIC OBSTRUCTIVE PULMONARY DISEASE [None]
  - EMPHYSEMA [None]
